FAERS Safety Report 4996312-3 (Version None)
Quarter: 2006Q2

REPORT INFORMATION
  Report Type: 
  Country: None (occurrence: None)
  Receive Date: 20060505
  Receipt Date: 20060426
  Transmission Date: 20061013
  Serious: Yes (Hospitalization)
  Sender: FDA-Public Use
  Company Number: DEWYE583126APR06

PATIENT
  Age: 34 Year
  Sex: Male

DRUGS (15)
  1. RAPAMUNE [Suspect]
     Dosage: 2 MG; 12 MG; 4 MG; 5 MG
     Dates: start: 20020510, end: 20020510
  2. RAPAMUNE [Suspect]
     Dosage: 2 MG; 12 MG; 4 MG; 5 MG
     Dates: start: 20020511, end: 20020517
  3. RAPAMUNE [Suspect]
     Dosage: 2 MG; 12 MG; 4 MG; 5 MG
     Dates: start: 20020518, end: 20021024
  4. RAPAMUNE [Suspect]
     Dosage: 2 MG; 12 MG; 4 MG; 5 MG
     Dates: start: 20021025
  5. PROGRAF [Concomitant]
  6. DECORTIN (PREDNISONE) [Concomitant]
  7. METOPROLOL SUCCINATE [Concomitant]
  8. NITRENDIPINE (NITRENDIPINE) [Concomitant]
  9. CAPTOPRIL [Concomitant]
  10. CLONIDINE [Concomitant]
  11. PROTAPHAN (INSULIN ISOPHANE, HUMAN BIOSYNTHETIC) [Concomitant]
  12. ACTRAPID HUMAN (INSULIN HUMAN), ON DEMAND [Concomitant]
  13. PRAVASTATIN SODIUM [Concomitant]
  14. ROCALTRO (CALCITRIOL) [Concomitant]
  15. TORSEMIDE [Concomitant]

REACTIONS (3)
  - BLOOD CREATININE INCREASED [None]
  - FLANK PAIN [None]
  - PROTEINURIA [None]
